FAERS Safety Report 9061430 (Version 1)
Quarter: 2013Q1

REPORT INFORMATION
  Report Type: Spontaneous
  Country: US (occurrence: None)
  Receive Date: 20130118
  Receipt Date: 20130118
  Transmission Date: 20140127
  Serious: Yes (Hospitalization)
  Sender: FDA-Public Use
  Company Number: CIO12025921

PATIENT
  Age: 63 Year
  Sex: Female

DRUGS (5)
  1. ZZZQUIL NIGHTIME SLEEP-AID [Suspect]
     Indication: INSOMNIA
     Dosage: 2 LIQCAP, BEDTIME FOR 2 NIGHTS, ORAL
     Route: 048
     Dates: start: 20121215, end: 20121216
  2. LISINOPRIL (LISINOPRIL) [Concomitant]
  3. PROZAC?/00724401/( FLUOXETINE) [Concomitant]
  4. ATIVAN (LORAZEPAM) [Concomitant]
  5. BABY ASPIRIN (ACETYLSALICYLIC ACID) [Concomitant]

REACTIONS (9)
  - Blood pressure increased [None]
  - Dizziness [None]
  - Headache [None]
  - Chest pain [None]
  - Hypoaesthesia [None]
  - Palpitations [None]
  - Nightmare [None]
  - Migraine [None]
  - Hypoaesthesia [None]
